FAERS Safety Report 10108894 (Version 1)
Quarter: 2014Q2

REPORT INFORMATION
  Report Type: Spontaneous
  Country: US (occurrence: US)
  Receive Date: 20140425
  Receipt Date: 20140425
  Transmission Date: 20141212
  Serious: No
  Sender: FDA-Public Use
  Company Number: 2014SP001148

PATIENT
  Age: 9 Year
  Sex: Female

DRUGS (2)
  1. ENBREL [Suspect]
     Dosage: 40 MG, QWK
     Route: 058
     Dates: start: 201402
  2. METHOTREXATE [Suspect]
     Dosage: UNK
     Route: 065

REACTIONS (3)
  - Oral pain [Unknown]
  - Injection site pruritus [Recovered/Resolved]
  - Injection site pain [Recovered/Resolved]
